FAERS Safety Report 5463923-0 (Version None)
Quarter: 2007Q3

REPORT INFORMATION
  Report Type: 
  Country: None (occurrence: None)
  Receive Date: 20070921
  Receipt Date: 20070605
  Transmission Date: 20080115
  Serious: No
  Sender: FDA-Public Use
  Company Number: A0654263A

PATIENT
  Age: 47 Year
  Sex: Male

DRUGS (3)
  1. AVANDARYL [Suspect]
     Dosage: 1TAB UNKNOWN
     Route: 048
     Dates: start: 20060401
  2. AVANDIA [Suspect]
     Dosage: 1TAB PER DAY
     Route: 048
     Dates: start: 20000101
  3. BLOOD PRESSURE MEDICATION [Concomitant]

REACTIONS (1)
  - OEDEMA PERIPHERAL [None]
